APPROVED DRUG PRODUCT: CLINDAMYCIN HYDROCHLORIDE
Active Ingredient: CLINDAMYCIN HYDROCHLORIDE
Strength: EQ 150MG BASE
Dosage Form/Route: CAPSULE;ORAL
Application: A065442 | Product #001 | TE Code: AB
Applicant: AUROBINDO PHARMA LTD
Approved: Aug 26, 2009 | RLD: No | RS: No | Type: RX